FAERS Safety Report 19610384 (Version 9)
Quarter: 2022Q4

REPORT INFORMATION
  Report Type: Report from Study
  Country: US (occurrence: US)
  Receive Date: 20210726
  Receipt Date: 20221202
  Transmission Date: 20230112
  Serious: Yes (Life-Threatening, Hospitalization)
  Sender: FDA-Public Use
  Company Number: US-NOVARTISPH-NVSC2021US158335

PATIENT
  Age: 1 Year
  Sex: Male
  Weight: 12.7 kg

DRUGS (3)
  1. ILARIS [Suspect]
     Active Substance: CANAKINUMAB
     Indication: Juvenile idiopathic arthritis
     Dosage: 45 MG, QMO
     Route: 058
     Dates: start: 20210630
  2. ILARIS [Suspect]
     Active Substance: CANAKINUMAB
     Indication: Pyrexia
     Dosage: 45 MG, Q4W
     Route: 058
     Dates: start: 20210723
  3. ILARIS [Suspect]
     Active Substance: CANAKINUMAB
     Dosage: 60 MG, Q4W
     Route: 058

REACTIONS (9)
  - Pyrexia [Not Recovered/Not Resolved]
  - Dehydration [Unknown]
  - Respiratory syncytial virus infection [Unknown]
  - Tachycardia [Unknown]
  - Swelling [Not Recovered/Not Resolved]
  - Faeces discoloured [Unknown]
  - Rhinorrhoea [Unknown]
  - Cough [Unknown]
  - Inappropriate schedule of product administration [Unknown]

NARRATIVE: CASE EVENT DATE: 20210704
